FAERS Safety Report 8956700 (Version 1)
Quarter: 2012Q4

REPORT INFORMATION
  Report Type: Spontaneous
  Country: US (occurrence: None)
  Receive Date: 20121211
  Receipt Date: 20121211
  Transmission Date: 20130627
  Serious: No
  Sender: FDA-Public Use
  Company Number: None

PATIENT
  Age: 70 Year
  Sex: Female
  Weight: 49.9 kg

DRUGS (6)
  1. METHYLPREDNISOLONE [Suspect]
     Indication: LUMBAR SPONDYLOSIS
     Route: 008
     Dates: start: 20120717, end: 20120926
  2. METHYLPREDNISOLONE [Suspect]
     Indication: ARTHROSIS
     Route: 008
     Dates: start: 20120717, end: 20120926
  3. METHYLPREDNISOLONE [Suspect]
     Indication: DEGENERATIVE DISC DISEASE
     Route: 008
     Dates: start: 20120717, end: 20120926
  4. METHYLPREDNISOLONE [Suspect]
     Indication: LUMBAR SPONDYLOSIS
     Route: 053
  5. METHYLPREDNISOLONE [Suspect]
     Indication: ARTHROSIS
     Route: 053
  6. METHYLPREDNISOLONE [Suspect]
     Indication: DEGENERATIVE DISC DISEASE
     Route: 053

REACTIONS (2)
  - Dizziness [None]
  - Headache [None]
